FAERS Safety Report 21031876 (Version 1)
Quarter: 2022Q3

REPORT INFORMATION
  Report Type: Spontaneous
  Country: US (occurrence: None)
  Receive Date: 20220701
  Receipt Date: 20220701
  Transmission Date: 20221027
  Serious: No
  Sender: FDA-Public Use
  Company Number: US-ROCHE-3070506

PATIENT
  Age: 94 Year
  Sex: Male
  Weight: 72.640 kg

DRUGS (8)
  1. ACTEMRA [Suspect]
     Active Substance: TOCILIZUMAB
     Indication: Giant cell arteritis
     Route: 065
     Dates: start: 2019, end: 2021
  2. ACTEMRA [Suspect]
     Active Substance: TOCILIZUMAB
     Indication: Giant cell arteritis
     Dosage: ONGOING: YES
     Route: 058
     Dates: start: 2021
  3. ACTEMRA [Suspect]
     Active Substance: TOCILIZUMAB
  4. AMLODIPINE BESYLATE [Concomitant]
     Active Substance: AMLODIPINE BESYLATE
     Indication: Blood pressure measurement
     Dates: start: 2021
  5. WARFARIN [Concomitant]
     Active Substance: WARFARIN
     Dosage: DOSE VARIES, TAKES DAILY
     Dates: start: 2019
  6. PREDNISONE [Concomitant]
     Active Substance: PREDNISONE
     Dates: start: 2019
  7. ABIRATERONE [Concomitant]
     Active Substance: ABIRATERONE
     Indication: Neoplasm malignant
     Dates: start: 2019
  8. CALCIUM CARBONATE\CHOLECALCIFEROL [Concomitant]
     Active Substance: CALCIUM CARBONATE\CHOLECALCIFEROL
     Dosage: 600MG/300MG
     Dates: start: 2019

REACTIONS (3)
  - Product dose omission issue [Unknown]
  - Bone disorder [Unknown]
  - Device issue [Unknown]

NARRATIVE: CASE EVENT DATE: 20220404
